FAERS Safety Report 5104290-1 (Version None)
Quarter: 2006Q3

REPORT INFORMATION
  Report Type: 
  Country: None (occurrence: None)
  Receive Date: 20060914
  Receipt Date: 20060904
  Transmission Date: 20061208
  Serious: Yes (Hospitalization, Other)
  Sender: FDA-Public Use
  Company Number: JP-JNJFOC-20040200325

PATIENT
  Sex: Female

DRUGS (19)
  1. REMICADE [Suspect]
     Route: 041
  2. REMICADE [Suspect]
     Route: 041
  3. REMICADE [Suspect]
     Route: 041
  4. REMICADE [Suspect]
     Indication: RHEUMATOID ARTHRITIS
     Route: 041
  5. RHEUMATREX [Concomitant]
     Route: 048
     Dates: start: 20030213
  6. RHEUMATREX [Concomitant]
     Route: 048
     Dates: start: 20030213
  7. RHEUMATREX [Concomitant]
     Route: 048
     Dates: start: 20030213
  8. PREDNISOLONE [Concomitant]
     Indication: RHEUMATOID ARTHRITIS
     Route: 048
  9. AZULFIDINE [Concomitant]
     Route: 048
  10. LORFENAMIN [Concomitant]
     Route: 048
  11. VOLTAREN [Concomitant]
  12. FOLIAMIN [Concomitant]
     Route: 048
  13. SELBEX [Concomitant]
     Route: 048
  14. MAGNESIUM OXIDE [Concomitant]
     Indication: DIARRHOEA
     Route: 048
  15. ALTAT [Concomitant]
     Route: 048
  16. FOSAMAX [Concomitant]
     Route: 048
  17. LEVOFLOXACIN [Concomitant]
     Route: 048
  18. MILTAX [Concomitant]
  19. METHOTREXATE [Concomitant]
     Indication: ARTHROPATHY

REACTIONS (1)
  - PERITONEAL TUBERCULOSIS [None]
